FAERS Safety Report 6816822-3 (Version None)
Quarter: 2010Q3

REPORT INFORMATION
  Report Type: 
  Country: None (occurrence: None)
  Receive Date: 20100706
  Receipt Date: 20100702
  Transmission Date: 20110219
  Serious: Yes (Other)
  Sender: FDA-Public Use
  Company Number: US-JNJFOC-20100203697

PATIENT
  Sex: Female

DRUGS (2)
  1. LEVAQUIN [Suspect]
     Indication: RESPIRATORY DISORDER
     Route: 048
  2. LEVAQUIN [Suspect]
     Indication: EAR INFECTION
     Route: 048

REACTIONS (2)
  - EPICONDYLITIS [None]
  - TENDON RUPTURE [None]
